FAERS Safety Report 6946017-4 (Version None)
Quarter: 2010Q3

REPORT INFORMATION
  Report Type: 
  Country: None (occurrence: None)
  Receive Date: 20100827
  Receipt Date: 20100819
  Transmission Date: 20110219
  Serious: Yes (Other)
  Sender: FDA-Public Use
  Company Number: US-AMGEN-QUU432361

PATIENT

DRUGS (3)
  1. EPOGEN [Suspect]
     Indication: RENAL FAILURE CHRONIC
  2. FOLIC ACID [Concomitant]
  3. VENOFER [Concomitant]

REACTIONS (1)
  - HAEMOGLOBIN DECREASED [None]
